FAERS Safety Report 5229760-7 (Version None)
Quarter: 2007Q1

REPORT INFORMATION
  Report Type: 
  Country: None (occurrence: None)
  Receive Date: 20070206
  Receipt Date: 20070131
  Transmission Date: 20070707
  Serious: Yes (Death, Other)
  Sender: FDA-Public Use
  Company Number: IL-AVENTIS-200615781EU

PATIENT
  Age: 73 Year
  Sex: Male
  Weight: 56 kg

DRUGS (5)
  1. CLEXANE [Suspect]
     Route: 058
     Dates: start: 20061105, end: 20061112
  2. OXYCONTIN [Concomitant]
     Route: 048
     Dates: start: 20061107, end: 20061107
  3. OPTALGIN [Concomitant]
     Route: 048
  4. ZANTAC [Concomitant]
     Route: 042
     Dates: start: 20061106, end: 20061109
  5. CEPHANMYCIN [Concomitant]
     Route: 042

REACTIONS (5)
  - DEATH [None]
  - INJECTION SITE NECROSIS [None]
  - PULMONARY EMBOLISM [None]
  - SEPTIC SHOCK [None]
  - THROMBOCYTOPENIA [None]
